FAERS Safety Report 11070708 (Version 1)
Quarter: 2015Q2

REPORT INFORMATION
  Report Type: Report from Study
  Country: US (occurrence: US)
  Receive Date: 20150427
  Receipt Date: 20150427
  Transmission Date: 20150821
  Serious: Yes (Other)
  Sender: FDA-Public Use
  Company Number: US-ABBVIE-15P-163-1380486-00

PATIENT
  Sex: Female

DRUGS (3)
  1. ZEMPLAR [Suspect]
     Active Substance: PARICALCITOL
     Indication: PRODUCT USED FOR UNKNOWN INDICATION
     Route: 065
     Dates: start: 201208
  2. VICODIN [Suspect]
     Active Substance: ACETAMINOPHEN\HYDROCODONE BITARTRATE
     Route: 048
  3. VICODIN [Suspect]
     Active Substance: ACETAMINOPHEN\HYDROCODONE BITARTRATE
     Indication: CONGENITAL CYSTIC KIDNEY DISEASE
     Route: 048

REACTIONS (4)
  - Congenital cystic kidney disease [Not Recovered/Not Resolved]
  - Speech disorder [Unknown]
  - Renal transplant [Unknown]
  - Migraine [Unknown]

NARRATIVE: CASE EVENT DATE: 20140701
